FAERS Safety Report 11061199 (Version 1)
Quarter: 2015Q2

REPORT INFORMATION
  Report Type: Spontaneous
  Country: US (occurrence: US)
  Receive Date: 20150424
  Receipt Date: 20150424
  Transmission Date: 20150821
  Serious: Yes (Other)
  Sender: FDA-Public Use
  Company Number: US-ROCHE-1568294

PATIENT
  Age: 43 Year
  Sex: Female

DRUGS (8)
  1. KETOTIFEN [Concomitant]
     Active Substance: KETOTIFEN
  2. TIOTROPIUM [Concomitant]
     Active Substance: TIOTROPIUM
  3. MONTELUKAST SODIUM. [Suspect]
     Active Substance: MONTELUKAST SODIUM
     Indication: ASTHMA
     Route: 048
  4. EPINEPHRINE. [Suspect]
     Active Substance: EPINEPHRINE
     Indication: ANAPHYLACTIC REACTION
     Route: 065
  5. OMALIZUMAB [Suspect]
     Active Substance: OMALIZUMAB
     Indication: ASTHMA
     Route: 058
  6. EPINEPHRINE. [Suspect]
     Active Substance: EPINEPHRINE
     Route: 030
  7. FLUTICASONE [Suspect]
     Active Substance: FLUTICASONE\FLUTICASONE PROPIONATE
     Indication: ASTHMA
     Route: 055
  8. SALMETEROL [Suspect]
     Active Substance: SALMETEROL
     Indication: ASTHMA
     Route: 055

REACTIONS (2)
  - Anaphylactic reaction [Recovered/Resolved]
  - Asthma [Unknown]
